FAERS Safety Report 26158200 (Version 1)
Quarter: 2025Q4

REPORT INFORMATION
  Report Type: Spontaneous
  Country: EU (occurrence: EU)
  Receive Date: 20251215
  Receipt Date: 20251215
  Transmission Date: 20260117
  Serious: Yes (Hospitalization, Other)
  Sender: OTSUKA
  Company Number: EU-MMM-Otsuka-JEBI9LR0

PATIENT
  Age: 55 Year
  Sex: Male

DRUGS (3)
  1. ABILIFY MAINTENA [Suspect]
     Active Substance: ARIPIPRAZOLE
     Indication: Product used for unknown indication
     Dosage: 960 MG EVERY 2 MONTHS
     Route: 065
     Dates: start: 20250303, end: 20251013
  2. QUETIAPINE [Concomitant]
     Active Substance: QUETIAPINE
     Indication: Product used for unknown indication
     Dosage: 400 MG
     Route: 065
  3. QUETIAPINE [Concomitant]
     Active Substance: QUETIAPINE
     Dosage: 450 MG (INCREASE IN QUETIAPINE 400 WITH ONE TABLET OF QUETIAPINE 50)
     Route: 065

REACTIONS (3)
  - Substance abuse [Unknown]
  - Suicidal ideation [Unknown]
  - Cyclothymic disorder [Recovered/Resolved]

NARRATIVE: CASE EVENT DATE: 20250101
